FAERS Safety Report 15286701 (Version 2)
Quarter: 2018Q4

REPORT INFORMATION
  Report Type: Spontaneous
  Country: US (occurrence: US)
  Receive Date: 20180816
  Receipt Date: 20181016
  Transmission Date: 20190204
  Serious: No
  Sender: FDA-Public Use
  Company Number: US-AMGEN-USASP2018076391

PATIENT
  Age: 63 Year
  Sex: Male
  Weight: 95 kg

DRUGS (20)
  1. VITAMIN C [Concomitant]
     Active Substance: ASCORBIC ACID
     Dosage: 1000 MG, QD
     Route: 048
  2. HYDRALAZINE [Concomitant]
     Active Substance: HYDRALAZINE HYDROCHLORIDE
     Dosage: 100 MG, QID
     Route: 048
     Dates: start: 20180606
  3. INSULIN [Concomitant]
     Active Substance: INSULIN NOS
     Dosage: UNK, TID
     Route: 058
  4. ALBUTEROL HFA [Concomitant]
     Active Substance: ALBUTEROL SULFATE
     Indication: WHEEZING
     Dosage: 90 MUG, AS NECESSARY
     Route: 045
     Dates: start: 20180521
  5. AMLODIPINE [Concomitant]
     Active Substance: AMLODIPINE BESYLATE
     Dosage: 10 MG, QD
     Route: 048
     Dates: start: 201801
  6. LEVOTHYROXINE. [Concomitant]
     Active Substance: LEVOTHYROXINE
     Dosage: 50 MG, QD (EVENING)
     Route: 048
  7. CALCIUM CARBONATE. [Concomitant]
     Active Substance: CALCIUM CARBONATE
     Dosage: 200 MG, QID
     Dates: start: 20180521
  8. PEPCID [Concomitant]
     Active Substance: FAMOTIDINE
     Dosage: 20 MG, QD WITH LUNCH
     Route: 048
     Dates: start: 20180521
  9. SENSIPAR [Suspect]
     Active Substance: CINACALCET HYDROCHLORIDE
     Indication: PRODUCT USED FOR UNKNOWN INDICATION
     Dosage: UNK
     Route: 065
  10. ERGOCALCIFEROL. [Concomitant]
     Active Substance: ERGOCALCIFEROL
     Dosage: 50000 UNIT, QWK
     Route: 048
     Dates: start: 20180604
  11. XANAX [Concomitant]
     Active Substance: ALPRAZOLAM
     Dosage: 0.5 MG, QD (PRN)
     Route: 048
     Dates: start: 20180521
  12. LUCENTIS [Concomitant]
     Active Substance: RANIBIZUMAB
     Indication: MACULAR DEGENERATION
     Dosage: UNK UNK, Q8WK, 0.3MG/0.05 ML, INTRAVITREAL
     Dates: start: 20180521
  13. PARSABIV [Suspect]
     Active Substance: ETELCALCETIDE HYDROCHLORIDE
     Indication: HYPERPARATHYROIDISM SECONDARY
     Dosage: 5 MG, 3 TIMES/WK
     Route: 040
     Dates: start: 20180312, end: 20180320
  14. DIPROLENE AF [Concomitant]
     Active Substance: BETAMETHASONE DIPROPIONATE
     Dosage: UNK, CREAM AS DIRECTED
     Dates: start: 20180521
  15. OXYCODONE [Concomitant]
     Active Substance: OXYCODONE
     Dosage: UNK UNK, Q4H
     Route: 048
     Dates: start: 20180521
  16. CARAFATE [Concomitant]
     Active Substance: SUCRALFATE
     Dosage: UNK, QID
     Route: 048
     Dates: start: 20180521
  17. LISINOPRIL. [Concomitant]
     Active Substance: LISINOPRIL
     Dosage: 20 MG, BID
     Route: 048
  18. TUMS [Concomitant]
     Active Substance: CALCIUM CARBONATE
     Dosage: UNK UNK, TID
     Route: 048
     Dates: end: 20180521
  19. NOVOLIN [Concomitant]
     Active Substance: INSULIN HUMAN
     Dosage: 100 U/L, QHS
     Route: 058
     Dates: start: 20180521
  20. VITAMIN B12 [Concomitant]
     Active Substance: CYANOCOBALAMIN
     Dosage: 1000 MG, QD
     Route: 048

REACTIONS (1)
  - Drug hypersensitivity [Unknown]
